FAERS Safety Report 25591961 (Version 2)
Quarter: 2025Q3

REPORT INFORMATION
  Report Type: Report from Study
  Country: US (occurrence: US)
  Receive Date: 20250722
  Receipt Date: 20250813
  Transmission Date: 20251021
  Serious: Yes (Death, Other)
  Sender: ALEXION PHARMACEUTICALS
  Company Number: US-AstraZeneca-CH-00912885A

PATIENT
  Sex: Female

DRUGS (1)
  1. DAPAGLIFLOZIN [Suspect]
     Active Substance: DAPAGLIFLOZIN
     Route: 065

REACTIONS (11)
  - Death [Fatal]
  - Hypokalaemia [Unknown]
  - Chronic kidney disease [Unknown]
  - Diabetes mellitus [Unknown]
  - Type IIa hyperlipidaemia [Unknown]
  - Vitamin D deficiency [Unknown]
  - Essential hypertension [Unknown]
  - Hypomagnesaemia [Unknown]
  - Hyperglycaemia [Unknown]
  - Diabetic neuropathy [Unknown]
  - Microalbuminuria [Unknown]
